FAERS Safety Report 17967962 (Version 1)
Quarter: 2020Q3

REPORT INFORMATION
  Report Type: Spontaneous
  Country: GB (occurrence: GB)
  Receive Date: 20200701
  Receipt Date: 20200701
  Transmission Date: 20201103
  Serious: Yes (Other)
  Sender: FDA-Public Use
  Company Number: GB-ACCORD-187700

PATIENT
  Age: 66 Year
  Sex: Male
  Weight: 63 kg

DRUGS (2)
  1. CODEINE PHOSPHATE/PARACETAMOL [Interacting]
     Active Substance: ACETAMINOPHEN\CODEINE PHOSPHATE
     Indication: DIARRHOEA
     Route: 048
     Dates: start: 20200610, end: 20200610
  2. AMITRIPTYLINE [Suspect]
     Active Substance: AMITRIPTYLINE
     Indication: NEUROPATHY PERIPHERAL

REACTIONS (2)
  - Pain [Recovered/Resolved]
  - Drug interaction [Unknown]

NARRATIVE: CASE EVENT DATE: 20200610
